FAERS Safety Report 4502368-4 (Version None)
Quarter: 2004Q4

REPORT INFORMATION
  Report Type: 
  Country: None (occurrence: None)
  Receive Date: 20041116
  Receipt Date: 20041005
  Transmission Date: 20050328
  Serious: Yes (Hospitalization, Other)
  Sender: FDA-Public Use
  Company Number: PHFR2004GB03786

PATIENT
  Age: 15 Year
  Sex: Female

DRUGS (3)
  1. CLOZARIL [Suspect]
     Indication: SCHIZOPHRENIA
     Dosage: 200MG/DAY
     Route: 048
     Dates: start: 20040722, end: 20040927
  2. LITHIUM [Suspect]
     Indication: LEUKOCYTOSIS
     Dosage: 1400MG/DAY
     Route: 048
     Dates: end: 20040927
  3. CLONAZEPAM [Suspect]
     Indication: ABNORMAL BEHAVIOUR
     Dosage: 2MG/DAY
     Route: 048
     Dates: start: 20040914, end: 20041030

REACTIONS (18)
  - AGITATION [None]
  - BLOOD POTASSIUM DECREASED [None]
  - BLOOD UREA DECREASED [None]
  - C-REACTIVE PROTEIN INCREASED [None]
  - FATIGUE [None]
  - GRAND MAL CONVULSION [None]
  - HYPOTENSION [None]
  - MALAISE [None]
  - MYCOPLASMA INFECTION [None]
  - MYCOPLASMA SEROLOGY POSITIVE [None]
  - NAUSEA [None]
  - NEUTROPHIL COUNT DECREASED [None]
  - PSYCHOTIC DISORDER [None]
  - PYREXIA [None]
  - RED BLOOD CELL SEDIMENTATION RATE INCREASED [None]
  - THERAPEUTIC AGENT TOXICITY [None]
  - VIRAL INFECTION [None]
  - WHITE BLOOD CELL COUNT DECREASED [None]
